FAERS Safety Report 4671099-2 (Version None)
Quarter: 2005Q2

REPORT INFORMATION
  Report Type: 
  Country: None (occurrence: None)
  Receive Date: 20050523
  Receipt Date: 20050506
  Transmission Date: 20051028
  Serious: Yes (Hospitalization)
  Sender: FDA-Public Use
  Company Number: 2005071111

PATIENT
  Sex: Male

DRUGS (2)
  1. ROGAINE [Suspect]
     Dosage: TOPICAL
     Route: 061
  2. FINASTERIDE [Concomitant]

REACTIONS (1)
  - AORTIC ANEURYSM [None]
